FAERS Safety Report 10354796 (Version 1)
Quarter: 2014Q3

REPORT INFORMATION
  Report Type: Spontaneous
  Country: US (occurrence: None)
  Receive Date: 20140723
  Receipt Date: 20140723
  Transmission Date: 20150326
  Serious: No
  Sender: FDA-Public Use
  Company Number: US-145552

PATIENT
  Age: 5 Year
  Sex: Female
  Weight: 15.6 kg

DRUGS (1)
  1. VARIZIG [Suspect]
     Active Substance: HUMAN VARICELLA-ZOSTER IMMUNE GLOBULIN
     Indication: ANTIVIRAL PROPHYLAXIS
     Route: 030
     Dates: start: 20140707, end: 20140707

REACTIONS (4)
  - Wrong technique in drug usage process [None]
  - Medication error [None]
  - No adverse event [None]
  - Product label confusion [None]

NARRATIVE: CASE EVENT DATE: 20140707
